FAERS Safety Report 22638370 (Version 1)
Quarter: 2023Q2

REPORT INFORMATION
  Report Type: Spontaneous
  Country: GB (occurrence: None)
  Receive Date: 20230626
  Receipt Date: 20230626
  Transmission Date: 20230722
  Serious: Yes (Other)
  Sender: FDA-Public Use
  Company Number: 2023A143524

PATIENT
  Age: 62 Year
  Sex: Male
  Weight: 90 kg

DRUGS (6)
  1. TICAGRELOR [Suspect]
     Active Substance: TICAGRELOR
     Indication: Incorrect product administration duration
     Dosage: 90MG TWICE A DAY
     Dates: start: 20220423, end: 20230423
  2. ASPIRIN [Concomitant]
     Active Substance: ASPIRIN
     Indication: Myocardial infarction
     Dates: start: 20220423
  3. ATORVASTATIN [Concomitant]
     Active Substance: ATORVASTATIN
     Indication: Blood cholesterol
     Dates: start: 20220423
  4. BISOPROLOL [Concomitant]
     Active Substance: BISOPROLOL
     Indication: Myocardial infarction
     Dates: start: 20220423
  5. OMEPRAZOLE [Concomitant]
     Active Substance: OMEPRAZOLE
     Indication: Myocardial infarction
     Dates: start: 20220423
  6. RAMIPRIL [Concomitant]
     Active Substance: RAMIPRIL
     Indication: Myocardial infarction
     Dates: start: 20220423

REACTIONS (1)
  - Chest pain [Recovered/Resolved]

NARRATIVE: CASE EVENT DATE: 20220426
